FAERS Safety Report 23433525 (Version 1)
Quarter: 2024Q1

REPORT INFORMATION
  Report Type: Spontaneous
  Country: AU (occurrence: AU)
  Receive Date: 20240123
  Receipt Date: 20240123
  Transmission Date: 20240409
  Serious: Yes (Hospitalization, Other)
  Sender: FDA-Public Use
  Company Number: AU-TASMAN PHARMA, INC.-2024TSM00005

PATIENT
  Sex: Male

DRUGS (26)
  1. CLOZAPINE [Suspect]
     Active Substance: CLOZAPINE
     Dosage: 500 MG
     Dates: start: 20180822, end: 20180917
  2. CLOZAPINE [Suspect]
     Active Substance: CLOZAPINE
     Dosage: 600 MG
     Dates: start: 20180918, end: 20190507
  3. CLOZAPINE [Suspect]
     Active Substance: CLOZAPINE
     Dosage: 600 MG
     Dates: start: 20201007, end: 20201104
  4. CLOZAPINE [Suspect]
     Active Substance: CLOZAPINE
     Dosage: 400 MG
     Dates: start: 20201105, end: 20210317
  5. CLOZAPINE [Suspect]
     Active Substance: CLOZAPINE
     Dosage: 300 MG
     Dates: start: 20210318, end: 20210412
  6. CLOZAPINE [Suspect]
     Active Substance: CLOZAPINE
     Dosage: 300 MG
     Dates: start: 20210421, end: 20210905
  7. CLOZAPINE [Suspect]
     Active Substance: CLOZAPINE
     Dosage: 300 MG
     Dates: start: 20211006, end: 20211031
  8. CLOZAPINE [Suspect]
     Active Substance: CLOZAPINE
     Dosage: 300 MG
     Dates: start: 20211210, end: 20220329
  9. CLOZAPINE [Suspect]
     Active Substance: CLOZAPINE
     Dosage: 300 MG
     Dates: start: 20220426, end: 20221205
  10. CLOZAPINE [Suspect]
     Active Substance: CLOZAPINE
     Dosage: 600 MG
     Dates: start: 20221206, end: 20230103
  11. CLOZAPINE [Suspect]
     Active Substance: CLOZAPINE
     Dosage: 300 MG
     Dates: start: 20230104, end: 20231011
  12. CLOZAPINE [Suspect]
     Active Substance: CLOZAPINE
     Dosage: 28 MG
     Dates: start: 20231012, end: 20231107
  13. CLOZAPINE [Suspect]
     Active Substance: CLOZAPINE
     Dosage: 300 MG
     Dates: start: 20231108
  14. VERSACLOZ [Suspect]
     Active Substance: CLOZAPINE
     Dosage: 300 MG
     Dates: start: 20220330, end: 20220425
  15. CLOZAPINE [Suspect]
     Active Substance: CLOZAPINE
     Dosage: 600 MG
     Dates: start: 20190508, end: 20190729
  16. CLOZAPINE [Suspect]
     Active Substance: CLOZAPINE
     Dosage: 600 MG
     Dates: start: 20190823, end: 20191015
  17. CLOZAPINE [Suspect]
     Active Substance: CLOZAPINE
     Dosage: 550 MG
     Dates: start: 20191016, end: 20200322
  18. CLOZAPINE [Suspect]
     Active Substance: CLOZAPINE
     Dosage: 600 MG
     Dates: start: 20200618, end: 20200729
  19. CLOZAPINE [Suspect]
     Active Substance: CLOZAPINE
     Dosage: 200 MG
     Dates: start: 20200730, end: 20200810
  20. CLOZAPINE [Suspect]
     Active Substance: CLOZAPINE
     Dosage: 600 MG
     Dates: start: 20200811, end: 20201006
  21. CLOZAPINE [Suspect]
     Active Substance: CLOZAPINE
     Dosage: 600 MG
     Dates: start: 20190730, end: 20190822
  22. CLOZAPINE [Suspect]
     Active Substance: CLOZAPINE
     Dosage: 550 MG
     Dates: start: 20200323, end: 20200518
  23. CLOZAPINE [Suspect]
     Active Substance: CLOZAPINE
     Dosage: 600 MG
     Dates: start: 20200519, end: 20200617
  24. CLOZAPINE [Suspect]
     Active Substance: CLOZAPINE
     Dosage: 300 MG
     Dates: start: 20210413, end: 20210420
  25. CLOZAPINE [Suspect]
     Active Substance: CLOZAPINE
     Dosage: 300 MG
     Dates: start: 20210906, end: 20211005
  26. CLOZAPINE [Suspect]
     Active Substance: CLOZAPINE
     Dosage: 300 MG
     Dates: start: 20211101, end: 20211209

REACTIONS (4)
  - Hospitalisation [Unknown]
  - Colitis ulcerative [Unknown]
  - Fall [Unknown]
  - Neutrophil count decreased [Not Recovered/Not Resolved]

NARRATIVE: CASE EVENT DATE: 20200301
